FAERS Safety Report 6744497-0 (Version None)
Quarter: 2010Q2

REPORT INFORMATION
  Report Type: 
  Country: None (occurrence: None)
  Receive Date: 20100527
  Receipt Date: 20100518
  Transmission Date: 20101027
  Serious: Yes (Other)
  Sender: FDA-Public Use
  Company Number: US-PFIZER INC-2003161760US

PATIENT
  Sex: Female
  Weight: 61 kg

DRUGS (4)
  1. CELEBREX [Suspect]
     Indication: TENOSYNOVITIS
     Route: 048
     Dates: start: 20020513, end: 20030401
  2. CELEBREX [Suspect]
     Indication: CARPAL TUNNEL SYNDROME
  3. BEXTRA [Suspect]
     Indication: CARPAL TUNNEL SYNDROME
     Dosage: 10 MG, UNK
     Dates: start: 20020620, end: 20020101
  4. TYLENOL (CAPLET) [Concomitant]
     Dosage: UNK

REACTIONS (51)
  - ACNE [None]
  - ALOPECIA [None]
  - ANAEMIA [None]
  - ARTHRALGIA [None]
  - ARTHRITIS [None]
  - ASTHENIA [None]
  - BONE MARROW DISORDER [None]
  - BREAST MASS [None]
  - CARDIAC DISORDER [None]
  - CARDIAC MURMUR [None]
  - CARPAL TUNNEL SYNDROME [None]
  - CHILLS [None]
  - DRY MOUTH [None]
  - DYSPNOEA [None]
  - ERYTHEMA [None]
  - FATIGUE [None]
  - FLATULENCE [None]
  - FURUNCLE [None]
  - HAEMORRHAGE [None]
  - HEADACHE [None]
  - HEART RATE INCREASED [None]
  - HEAT RASH [None]
  - HEPATITIS A [None]
  - HYPERSENSITIVITY [None]
  - HYPERTENSION [None]
  - INFLUENZA LIKE ILLNESS [None]
  - INJURY [None]
  - INSOMNIA [None]
  - JOINT SWELLING [None]
  - LEUKOPENIA [None]
  - LIVER DISORDER [None]
  - LUPUS-LIKE SYNDROME [None]
  - LYMPHADENOPATHY [None]
  - MUSCLE ATROPHY [None]
  - MUSCULAR WEAKNESS [None]
  - MUSCULOSKELETAL PAIN [None]
  - NAIL DISCOLOURATION [None]
  - POSTURE ABNORMAL [None]
  - PRURITUS [None]
  - PULMONARY HYPERTENSION [None]
  - RASH [None]
  - RASH PAPULAR [None]
  - RENAL DISORDER [None]
  - SKIN BURNING SENSATION [None]
  - SKIN LACERATION [None]
  - SOFT TISSUE DISORDER [None]
  - STOMATITIS [None]
  - SWELLING [None]
  - TACHYCARDIA [None]
  - URTICARIA [None]
  - WEIGHT INCREASED [None]
